FAERS Safety Report 7216419-X (Version None)
Quarter: 2011Q1

REPORT INFORMATION
  Report Type: 
  Country: None (occurrence: None)
  Receive Date: 20110107
  Receipt Date: 20110105
  Transmission Date: 20110831
  Serious: Yes (Other)
  Sender: FDA-Public Use
  Company Number: CA-ABBOTT-10P-028-0692641-00

PATIENT
  Sex: Male
  Weight: 68.1 kg

DRUGS (4)
  1. COMBIGAN [Concomitant]
     Indication: PRODUCT USED FOR UNKNOWN INDICATION
     Dosage: 1 DROP EACH EYE TWICE DAILY
     Route: 047
  2. CASODEX 50 [Concomitant]
     Indication: PRODUCT USED FOR UNKNOWN INDICATION
  3. LUPRON DEPOT [Suspect]
     Indication: PROSTATE CANCER
     Dates: start: 20091230
  4. LUMIGAN [Concomitant]
     Indication: PRODUCT USED FOR UNKNOWN INDICATION
     Dosage: 1 DROP EACH EYE DAILY
     Route: 047

REACTIONS (1)
  - TERMINAL STATE [None]
